FAERS Safety Report 15678513 (Version 1)
Quarter: 2018Q4

REPORT INFORMATION
  Report Type: Spontaneous
  Country: US (occurrence: US)
  Receive Date: 20181130
  Receipt Date: 20181130
  Transmission Date: 20190205
  Serious: Yes (Other)
  Sender: FDA-Public Use
  Company Number: None

PATIENT
  Age: 61 Year
  Sex: Male
  Weight: 108 kg

DRUGS (14)
  1. PROTONIX [Concomitant]
     Active Substance: PANTOPRAZOLE SODIUM
  2. LOVASA [Concomitant]
  3. TORESMIDE [Concomitant]
  4. RANEXA [Suspect]
     Active Substance: RANOLAZINE
     Indication: ANGINA PECTORIS
     Dosage: ?          QUANTITY:1 TABLET(S);?
     Route: 048
  5. CORGARD [Concomitant]
     Active Substance: NADOLOL
  6. VITAMIN D3 [Concomitant]
     Active Substance: CHOLECALCIFEROL
  7. NOVOLOG [Concomitant]
     Active Substance: INSULIN ASPART
  8. NADALOL [Concomitant]
  9. LEVEMERE [Concomitant]
  10. TRONVITE [Concomitant]
  11. ASPIRIN. [Concomitant]
     Active Substance: ASPIRIN
  12. ALDACTONE [Concomitant]
     Active Substance: SPIRONOLACTONE
  13. PLAVIX [Concomitant]
     Active Substance: CLOPIDOGREL BISULFATE
  14. CRESTOR [Concomitant]
     Active Substance: ROSUVASTATIN CALCIUM

REACTIONS (1)
  - Glomerular filtration rate decreased [None]

NARRATIVE: CASE EVENT DATE: 20180701
